FAERS Safety Report 8201464-8 (Version None)
Quarter: 2012Q1

REPORT INFORMATION
  Report Type: 
  Country: None (occurrence: None)
  Receive Date: 20120307
  Receipt Date: 20120228
  Transmission Date: 20120608
  Serious: Yes (Death, Hospitalization)
  Sender: FDA-Public Use
  Company Number: 2011SP053235

PATIENT
  Age: 81 Year
  Sex: Female

DRUGS (9)
  1. DEXAMETHASONE [Concomitant]
  2. PROTELOS [Concomitant]
  3. PRAVAT (PRAVASTATIN) [Concomitant]
  4. BISOPROLOL FUMARATE [Concomitant]
  5. RAMIC (RAMIPRIL) [Concomitant]
  6. KYTRIL [Concomitant]
  7. CALCIUM CARBONATE [Concomitant]
  8. ASPIRIN [Concomitant]
  9. TEMODAL [Suspect]
     Indication: MALIGNANT MELANOMA
     Dosage: 250 MG; PO
     Route: 048
     Dates: start: 20111012

REACTIONS (2)
  - METASTATIC NEOPLASM [None]
  - PAIN IN EXTREMITY [None]
